FAERS Safety Report 11416373 (Version 1)
Quarter: 2015Q3

REPORT INFORMATION
  Report Type: Report from Study
  Country: US (occurrence: US)
  Receive Date: 20150825
  Receipt Date: 20150825
  Transmission Date: 20151125
  Serious: Yes (Other)
  Sender: FDA-Public Use
  Company Number: US-AMGEN-USASP2015085199

PATIENT
  Age: 54 Year
  Sex: Female

DRUGS (6)
  1. ENBREL [Suspect]
     Active Substance: ETANERCEPT
     Indication: PSORIASIS
     Dosage: 50 MG, 2 TIMES/WK
     Route: 065
     Dates: end: 2015
  2. COLCHICINE. [Suspect]
     Active Substance: COLCHICINE
     Indication: GOUT
  3. PREDNISONE. [Concomitant]
     Active Substance: PREDNISONE
  4. TYLENOL                            /00435101/ [Concomitant]
     Dosage: UNK
     Route: 065
  5. ENBREL [Suspect]
     Active Substance: ETANERCEPT
     Dosage: 50 MG, QWK
     Route: 065
     Dates: start: 2015
  6. COLCHICINE. [Suspect]
     Active Substance: COLCHICINE
     Indication: ARTHRITIS INFECTIVE

REACTIONS (9)
  - Arthritis infective [Unknown]
  - Gout [Unknown]
  - Diarrhoea [Unknown]
  - Walking aid user [Unknown]
  - Nodule [Unknown]
  - Arthropathy [Unknown]
  - Skin ulcer [Unknown]
  - Cough [Unknown]
  - Blister [Unknown]

NARRATIVE: CASE EVENT DATE: 2015
